FAERS Safety Report 6690873-4 (Version None)
Quarter: 2010Q2

REPORT INFORMATION
  Report Type: 
  Country: None (occurrence: None)
  Receive Date: 20100421
  Receipt Date: 20100409
  Transmission Date: 20101027
  Serious: Yes (Hospitalization)
  Sender: FDA-Public Use
  Company Number: FR-PFIZER INC-2010045490

PATIENT
  Age: 45 Year
  Sex: Male

DRUGS (4)
  1. LYRICA [Suspect]
     Indication: PAIN
     Dosage: UNK
  2. CLONAZEPAM [Concomitant]
  3. ANAFRANIL [Concomitant]
     Dosage: 25 UNK, 3X/DAY
  4. IMOVANE [Concomitant]

REACTIONS (4)
  - COGNITIVE DISORDER [None]
  - DECREASED APPETITE [None]
  - HYPOGLYCAEMIA [None]
  - OVERDOSE [None]
